FAERS Safety Report 16994991 (Version 2)
Quarter: 2019Q4

REPORT INFORMATION
  Report Type: Report from Study
  Country: AU (occurrence: AU)
  Receive Date: 20191105
  Receipt Date: 20191119
  Transmission Date: 20200122
  Serious: Yes (Other)
  Sender: FDA-Public Use
  Company Number: PHHY2015AU157712

PATIENT
  Age: 44 Year
  Sex: Female

DRUGS (1)
  1. GILENYA [Suspect]
     Active Substance: FINGOLIMOD HYDROCHLORIDE
     Indication: MULTIPLE SCLEROSIS
     Dosage: UNK, QD
     Route: 048
     Dates: start: 20140202

REACTIONS (12)
  - Bacterial rhinitis [Unknown]
  - Spinal fracture [Unknown]
  - Scab [Unknown]
  - Blood bilirubin increased [Unknown]
  - Fibrocystic breast disease [Unknown]
  - Upper respiratory tract infection [Recovered/Resolved]
  - Breast calcifications [Unknown]
  - Fall [Recovered/Resolved]
  - Limb injury [Unknown]
  - Bronchitis [Unknown]
  - Blister [Unknown]
  - Lymphopenia [Unknown]

NARRATIVE: CASE EVENT DATE: 20140829
